FAERS Safety Report 17741082 (Version 7)
Quarter: 2022Q2

REPORT INFORMATION
  Report Type: Report from Study
  Country: US (occurrence: US)
  Receive Date: 20200504
  Receipt Date: 20220616
  Transmission Date: 20220720
  Serious: Yes (Other)
  Sender: FDA-Public Use
  Company Number: NVSC2020US120161

PATIENT
  Age: 65 Year
  Sex: Female

DRUGS (2)
  1. COSENTYX [Suspect]
     Active Substance: SECUKINUMAB
     Indication: Psoriatic arthropathy
     Dosage: 300 MG
     Route: 058
     Dates: start: 201808
  2. COSENTYX [Suspect]
     Active Substance: SECUKINUMAB
     Indication: Arthritis
     Dosage: 300 MG, QMO
     Route: 058

REACTIONS (5)
  - Breast cancer [Unknown]
  - Pain [Unknown]
  - Pain in extremity [Unknown]
  - Psoriasis [Unknown]
  - Product use in unapproved indication [Unknown]

NARRATIVE: CASE EVENT DATE: 20211101
